FAERS Safety Report 10666826 (Version 1)
Quarter: 2014Q4

REPORT INFORMATION
  Report Type: Spontaneous
  Country: GB (occurrence: GB)
  Receive Date: 20141222
  Receipt Date: 20141222
  Transmission Date: 20150529
  Serious: Yes (Death, Hospitalization)
  Sender: FDA-Public Use
  Company Number: GB-BEH-2014047236

PATIENT
  Sex: Male

DRUGS (1)
  1. PRIVIGEN [Suspect]
     Active Substance: HUMAN IMMUNOGLOBULIN G
     Indication: CHRONIC INFLAMMATORY DEMYELINATING POLYRADICULONEUROPATHY
     Dosage: 20 G FOR 5 DAYS; 5 CYCLES

REACTIONS (4)
  - Dyspnoea [Unknown]
  - Death [Fatal]
  - Chest pain [Unknown]
  - Anxiety [Unknown]
